FAERS Safety Report 25627262 (Version 1)
Quarter: 2025Q3

REPORT INFORMATION
  Report Type: Spontaneous
  Country: US (occurrence: US)
  Receive Date: 20250731
  Receipt Date: 20250731
  Transmission Date: 20251021
  Serious: Yes (Hospitalization)
  Sender: BIOCRYST PHARMACEUTICALS
  Company Number: US-BIOCRYST PHARMACEUTICALS, INC.-2025BCR00956

PATIENT

DRUGS (1)
  1. ORLADEYO [Suspect]
     Active Substance: BEROTRALSTAT HYDROCHLORIDE
     Indication: Hereditary angioedema
     Dosage: 150 MG, QD
     Route: 048
     Dates: end: 202506

REACTIONS (6)
  - Hereditary angioedema [Recovered/Resolved]
  - Chest pain [Recovered/Resolved]
  - Migraine [Recovered/Resolved]
  - Gastrointestinal disorder [Recovered/Resolved]
  - Stress [Not Recovered/Not Resolved]
  - Product prescribing issue [Not Recovered/Not Resolved]

NARRATIVE: CASE EVENT DATE: 20250101
